FAERS Safety Report 14333037 (Version 1)
Quarter: 2017Q4

REPORT INFORMATION
  Report Type: Spontaneous
  Country: DE (occurrence: DE)
  Receive Date: 20171228
  Receipt Date: 20171228
  Transmission Date: 20180321
  Serious: Yes (Hospitalization)
  Sender: FDA-Public Use
  Company Number: GXKR2017DE004860

PATIENT
  Age: 17 Year
  Sex: Female
  Weight: 49 kg

DRUGS (1)
  1. MTX HEXAL [Suspect]
     Active Substance: METHOTREXATE SODIUM
     Indication: PRODUCT USED FOR UNKNOWN INDICATION
     Dosage: FETAL EXPOSURE VIA FATHER
     Route: 050

REACTIONS (2)
  - Premature delivery [Recovered/Resolved]
  - Exposure via father [Unknown]

NARRATIVE: CASE EVENT DATE: 20170523
